FAERS Safety Report 6110466-7 (Version None)
Quarter: 2009Q1

REPORT INFORMATION
  Report Type: 
  Country: None (occurrence: None)
  Receive Date: 20090310
  Receipt Date: 20090225
  Transmission Date: 20090719
  Serious: Yes (Hospitalization)
  Sender: FDA-Public Use
  Company Number: PHHY2008MX11722

PATIENT
  Age: 68 Year
  Sex: Female

DRUGS (5)
  1. DIOVAN HCT [Suspect]
     Indication: HYPERTENSION
     Dosage: 1 TABLET OF 160/25 MG PER DAY
     Route: 048
     Dates: start: 20060801
  2. DIOVAN HCT [Suspect]
     Dosage: 1/2 TABLET OF 160/25 MG PER DAY FROM JUN 2008
     Route: 048
     Dates: start: 20080601
  3. DICLOFENAC [Concomitant]
     Indication: OSTEOPOROSIS
     Dosage: UNK
     Dates: start: 20020101
  4. CALCITRIOL [Concomitant]
     Indication: OSTEOPOROSIS
     Dosage: UNK
     Dates: start: 20020101
  5. ALENDRONATE SODIUM [Concomitant]
     Indication: OSTEOPOROSIS
     Dosage: UNK
     Dates: start: 20020101

REACTIONS (9)
  - BACK PAIN [None]
  - CARDIAC DISORDER [None]
  - CHEST PAIN [None]
  - FACE OEDEMA [None]
  - FATIGUE [None]
  - HYPOTENSION [None]
  - NAUSEA [None]
  - RENAL DISORDER [None]
  - URINARY TRACT INFECTION [None]
